FAERS Safety Report 20809610 (Version 1)
Quarter: 2022Q2

REPORT INFORMATION
  Report Type: Spontaneous
  Country: GU (occurrence: None)
  Receive Date: 20220510
  Receipt Date: 20220510
  Transmission Date: 20220721
  Serious: No
  Sender: FDA-Public Use
  Company Number: None

PATIENT
  Age: 43 Year
  Sex: Female

DRUGS (1)
  1. BEBTELOVIMAB [Suspect]
     Active Substance: BEBTELOVIMAB
     Indication: COVID-19
     Dosage: FREQUENCY : ONCE;?
     Route: 042
     Dates: start: 20220504, end: 20220504

REACTIONS (5)
  - Dizziness [None]
  - Headache [None]
  - Ocular discomfort [None]
  - Photosensitivity reaction [None]
  - Eye irritation [None]

NARRATIVE: CASE EVENT DATE: 20220504
